FAERS Safety Report 9523675 (Version 3)
Quarter: 2013Q3

REPORT INFORMATION
  Report Type: Report from Study
  Country: US (occurrence: US)
  Receive Date: 20130913
  Receipt Date: 20130924
  Transmission Date: 20140515
  Serious: Yes (Hospitalization)
  Sender: FDA-Public Use
  Company Number: US-B.I. PHARMACEUTICALS,INC./RIDGEFIELD-2013-RU-00894BP

PATIENT
  Age: 64 Year
  Sex: Male
  Weight: 109.2 kg

DRUGS (1)
  1. BI 1356 [Suspect]
     Indication: TYPE 2 DIABETES MELLITUS
     Dosage: 5 MG
     Dates: start: 20120420, end: 20130828

REACTIONS (1)
  - Troponin increased [Recovered/Resolved]
